FAERS Safety Report 8151264-2 (Version None)
Quarter: 2012Q1

REPORT INFORMATION
  Report Type: 
  Country: None (occurrence: None)
  Receive Date: 20120220
  Receipt Date: 20120208
  Transmission Date: 20120608
  Serious: Yes (Disabling, Other)
  Sender: FDA-Public Use
  Company Number: US-ELI_LILLY_AND_COMPANY-US201202000293

PATIENT
  Sex: Female

DRUGS (11)
  1. PRAVASTATIN [Concomitant]
     Dosage: 10 MG, QD
  2. ONDANSETRON [Concomitant]
     Dosage: 4 MG, PRN
  3. ACIPHEX [Concomitant]
     Dosage: 20 MG, PRN
  4. NUCYNTA [Concomitant]
     Dosage: 100 MG, BID
  5. OLANZAPINE [Concomitant]
     Dosage: 5 MG, BID
  6. ANALGESICS [Concomitant]
     Indication: PAIN
  7. FORTEO [Suspect]
     Indication: OSTEOPOROSIS
     Dosage: 20 UG, QD
     Route: 065
     Dates: start: 20120128, end: 20120128
  8. FORTEO [Suspect]
     Dosage: 20 UG, QD
     Dates: start: 20120130, end: 20120131
  9. ALPRAZOLAM [Concomitant]
     Dosage: 0.25 MG, QID
  10. CYMBALTA [Concomitant]
     Indication: BACK PAIN
     Dosage: 30 MG, QD
     Dates: start: 20090101
  11. LIMBREL [Concomitant]
     Dosage: 500 MG, BID

REACTIONS (6)
  - PAIN IN EXTREMITY [None]
  - INTENTIONAL DRUG MISUSE [None]
  - PELVIC PAIN [None]
  - MUSCULAR WEAKNESS [None]
  - GAIT DISTURBANCE [None]
  - MOBILITY DECREASED [None]
